FAERS Safety Report 8093250-7 (Version None)
Quarter: 2012Q1

REPORT INFORMATION
  Report Type: 
  Country: None (occurrence: None)
  Receive Date: 20120128
  Receipt Date: 20111006
  Transmission Date: 20120608
  Serious: No
  Sender: FDA-Public Use
  Company Number: US-ABBOTT-11P-163-0724919-00

PATIENT
  Age: 31 Year
  Sex: Female

DRUGS (2)
  1. HUMIRA [Suspect]
     Indication: PSORIASIS
     Dates: start: 20110123
  2. LEVOTHYROXINE SODIUM [Concomitant]
     Indication: THYROID DISORDER
     Dosage: 137 MCG DAILY
     Route: 048

REACTIONS (11)
  - OROPHARYNGEAL PAIN [None]
  - INSOMNIA [None]
  - COUGH [None]
  - NASAL CONGESTION [None]
  - SKIN DISCOLOURATION [None]
  - HYPERSENSITIVITY [None]
  - WOUND COMPLICATION [None]
  - NASOPHARYNGITIS [None]
  - DYSPNOEA [None]
  - PSORIASIS [None]
  - SKIN LESION [None]
